FAERS Safety Report 4901434-9 (Version None)
Quarter: 2006Q1

REPORT INFORMATION
  Report Type: 
  Country: None (occurrence: None)
  Receive Date: 20060201
  Receipt Date: 20060201
  Transmission Date: 20060701
  Serious: Yes (Life-Threatening)
  Sender: FDA-Public Use
  Company Number: None

PATIENT
  Age: 56 Year
  Sex: Male
  Weight: 83 kg

DRUGS (2)
  1. DEPODUR [Suspect]
     Indication: PAIN
     Dosage: 10 MG ONE DOSE EPIDURAL
     Route: 008
     Dates: start: 20051024, end: 20051024
  2. DEPODUR [Suspect]
     Indication: PROCEDURAL PAIN
     Dosage: 10 MG ONE DOSE EPIDURAL
     Route: 008
     Dates: start: 20051024, end: 20051024

REACTIONS (5)
  - CARDIO-RESPIRATORY ARREST [None]
  - CYANOSIS [None]
  - HYPOTENSION [None]
  - PNEUMONIA ASPIRATION [None]
  - VOMITING [None]
